FAERS Safety Report 5936769-4 (Version None)
Quarter: 2008Q4

REPORT INFORMATION
  Report Type: 
  Country: None (occurrence: None)
  Receive Date: 20081022
  Receipt Date: 20081016
  Transmission Date: 20090506
  Serious: Yes (Life-Threatening, Hospitalization)
  Sender: FDA-Public Use
  Company Number: 200813586

PATIENT
  Age: 25 Year
  Sex: Male
  Weight: 53 kg

DRUGS (8)
  1. ALBUMIN (HUMAN) [Suspect]
     Indication: HYPOTENSION
     Dosage: 500 ML, DAILY, IV
     Route: 042
     Dates: start: 20070521, end: 20070521
  2. DIPRIVAN [Concomitant]
  3. ULTIVA [Concomitant]
  4. FLUMARIN [Concomitant]
  5. BOSMIN [Concomitant]
  6. FAMOTIDINE [Concomitant]
  7. XYLOCAINE [Concomitant]
  8. MIDAZOLAM HCL [Concomitant]

REACTIONS (5)
  - ACIDOSIS [None]
  - ANAPHYLACTIC SHOCK [None]
  - CATHETER THROMBOSIS [None]
  - CENTRAL LINE INFECTION [None]
  - THROMBOSIS [None]
